FAERS Safety Report 7278674-X (Version None)
Quarter: 2011Q1

REPORT INFORMATION
  Report Type: 
  Country: None (occurrence: None)
  Receive Date: 20110207
  Receipt Date: 20110204
  Transmission Date: 20110831
  Serious: No
  Sender: FDA-Public Use
  Company Number: US-PFIZER INC-2011026228

PATIENT
  Age: 31 Year
  Sex: Female
  Weight: 70.295 kg

DRUGS (1)
  1. ADVIL ALLERGY SINUS [Suspect]
     Indication: NASAL CONGESTION
     Dosage: 2/200/30 MG, DAILY
     Route: 048
     Dates: start: 20110101, end: 20110101

REACTIONS (1)
  - DRUG INEFFECTIVE [None]
